FAERS Safety Report 6479947-0 (Version None)
Quarter: 2009Q4

REPORT INFORMATION
  Report Type: 
  Country: None (occurrence: None)
  Receive Date: 20091208
  Receipt Date: 20091115
  Transmission Date: 20100525
  Serious: Yes (Other)
  Sender: FDA-Public Use
  Company Number: BR-SANOFI-AVENTIS-2009SA002893

PATIENT
  Age: 25 Year
  Sex: Female
  Weight: 49 kg

DRUGS (3)
  1. OPTIPEN [Suspect]
     Indication: TYPE 1 DIABETES MELLITUS
     Dates: start: 20080101
  2. LANTUS [Suspect]
     Route: 058
     Dates: start: 20080101
  3. HUMALOG [Concomitant]
     Route: 058

REACTIONS (3)
  - BLOOD GLUCOSE INCREASED [None]
  - KETOSIS [None]
  - PRODUCT QUALITY ISSUE [None]
